FAERS Safety Report 21611665 (Version 1)
Quarter: 2022Q4

REPORT INFORMATION
  Report Type: Report from Study
  Country: US (occurrence: US)
  Receive Date: 20221117
  Receipt Date: 20221117
  Transmission Date: 20230113
  Serious: Yes (Hospitalization)
  Sender: FDA-Public Use
  Company Number: US-ABBVIE-22K-163-4526760-00

PATIENT
  Age: 73 Year
  Sex: Male

DRUGS (4)
  1. IBRUTINIB [Suspect]
     Active Substance: IBRUTINIB
     Indication: B-cell small lymphocytic lymphoma
     Route: 048
  2. Moderna [Concomitant]
     Indication: COVID-19 immunisation
     Dosage: 1ST DOSE
     Route: 030
     Dates: start: 202102, end: 202102
  3. Moderna [Concomitant]
     Indication: COVID-19 immunisation
     Dosage: 2ND DOSE
     Route: 030
     Dates: start: 202103, end: 202103
  4. Moderna [Concomitant]
     Indication: COVID-19 immunisation
     Dosage: 3RD DOSE
     Route: 030
     Dates: start: 202109, end: 202109

REACTIONS (1)
  - COVID-19 [Recovering/Resolving]

NARRATIVE: CASE EVENT DATE: 20220901
